FAERS Safety Report 4305315-3 (Version None)
Quarter: 2004Q1

REPORT INFORMATION
  Report Type: 
  Country: None (occurrence: None)
  Receive Date: 20040226
  Receipt Date: 20030429
  Transmission Date: 20041129
  Serious: No
  Sender: FDA-Public Use
  Company Number: US-BRISTOL-MYERS SQUIBB COMPANY-12258257

PATIENT
  Age: 70 Year
  Sex: Female
  Weight: 28 kg

DRUGS (12)
  1. TAXOL [Suspect]
     Indication: NON-SMALL CELL LUNG CANCER
     Route: 042
     Dates: start: 20030408, end: 20030408
  2. PARAPLATIN [Suspect]
     Indication: NON-SMALL CELL LUNG CANCER
     Route: 042
     Dates: start: 20030408, end: 20030408
  3. DEXAMETHASONE [Concomitant]
     Indication: PREMEDICATION
     Route: 042
  4. PEPCID [Concomitant]
     Indication: PREMEDICATION
     Route: 042
  5. DIPHENHYDRAMINE HCL [Concomitant]
     Indication: PREMEDICATION
     Route: 042
  6. KYTRIL [Concomitant]
     Indication: PREMEDICATION
     Route: 048
  7. ESTROGEN [Concomitant]
  8. ATIVAN [Concomitant]
  9. MULTIVITAMIN [Concomitant]
  10. ADVIL [Concomitant]
  11. CALCIUM [Concomitant]
  12. ZOFRAN [Concomitant]

REACTIONS (3)
  - PARAESTHESIA [None]
  - RASH [None]
  - RASH PRURITIC [None]
